FAERS Safety Report 9750966 (Version 1)
Quarter: 2013Q4

REPORT INFORMATION
  Report Type: Spontaneous
  Country: US (occurrence: US)
  Receive Date: 20131212
  Receipt Date: 20131212
  Transmission Date: 20140711
  Serious: Yes (Other)
  Sender: FDA-Public Use
  Company Number: US-TEVA-400032USA

PATIENT
  Age: 29 Year
  Sex: Female
  Weight: 81.72 kg

DRUGS (3)
  1. PARAGARD 380A [Suspect]
     Indication: CONTRACEPTION
     Route: 015
     Dates: start: 200904, end: 20130417
  2. THYROXIN T3 [Concomitant]
     Indication: HYPOTHYROIDISM
  3. PROGESTERONE [Concomitant]
     Indication: MENSTRUATION IRREGULAR

REACTIONS (3)
  - Embedded device [Not Recovered/Not Resolved]
  - Medical device complication [Unknown]
  - Uterine pain [Unknown]
